FAERS Safety Report 7984785-3 (Version None)
Quarter: 2011Q4

REPORT INFORMATION
  Report Type: 
  Country: None (occurrence: None)
  Receive Date: 20111216
  Receipt Date: 20111129
  Transmission Date: 20120403
  Serious: Yes (Other)
  Sender: FDA-Public Use
  Company Number: US-AMGEN-USASP2011063006

PATIENT
  Age: 62 Year
  Sex: Female

DRUGS (1)
  1. ENBREL [Suspect]
     Indication: RHEUMATOID ARTHRITIS
     Dosage: 50 MG, QWK
     Dates: start: 20011001

REACTIONS (8)
  - PAIN [None]
  - GAIT DISTURBANCE [None]
  - BURNS SECOND DEGREE [None]
  - RHEUMATOID ARTHRITIS [None]
  - BONE DISORDER [None]
  - EXOSTOSIS [None]
  - INFLAMMATION [None]
  - PAIN IN EXTREMITY [None]
